FAERS Safety Report 7818919-8 (Version None)
Quarter: 2011Q4

REPORT INFORMATION
  Report Type: 
  Country: None (occurrence: None)
  Receive Date: 20111017
  Receipt Date: 20111017
  Transmission Date: 20120403
  Serious: Yes (Hospitalization)
  Sender: FDA-Public Use
  Company Number: None

PATIENT
  Sex: Male
  Weight: 78 kg

DRUGS (4)
  1. BLEOMYCIN SULFATE [Suspect]
     Dosage: 19 UNIT
  2. DOXORUBICIN HCL [Suspect]
     Dosage: 49 MG
  3. DACARBAZINE [Suspect]
     Dosage: 735 MG
  4. VINBLASTINE SULFATE [Suspect]
     Dosage: 11 MG

REACTIONS (1)
  - PULMONARY EMBOLISM [None]
